FAERS Safety Report 8251560-4 (Version None)
Quarter: 2012Q1

REPORT INFORMATION
  Report Type: 
  Country: None (occurrence: None)
  Receive Date: 20120322
  Receipt Date: 20111227
  Transmission Date: 20120608
  Serious: Yes (Hospitalization)
  Sender: FDA-Public Use
  Company Number: UTC-013966

PATIENT
  Age: 65 Year
  Sex: Female
  Weight: 75.9 kg

DRUGS (1)
  1. TYVASO [Suspect]
     Indication: PULMONARY ARTERIAL HYPERTENSION
     Dosage: INHALATION
     Route: 055
     Dates: start: 20111205

REACTIONS (2)
  - DYSPNOEA [None]
  - PULMONARY FUNCTION TEST ABNORMAL [None]
